FAERS Safety Report 10861916 (Version 1)
Quarter: 2015Q1

REPORT INFORMATION
  Report Type: Spontaneous
  Country: US (occurrence: US)
  Receive Date: 20150224
  Receipt Date: 20150224
  Transmission Date: 20150721
  Serious: No
  Sender: FDA-Public Use
  Company Number: US-TEVA-492020USA

PATIENT
  Sex: Female

DRUGS (1)
  1. NORTREL [Suspect]
     Active Substance: ETHINYL ESTRADIOL\NORETHINDRONE

REACTIONS (4)
  - Nausea [Unknown]
  - Incorrect product storage [Unknown]
  - Breast tenderness [Unknown]
  - Weight increased [Unknown]
